FAERS Safety Report 13381755 (Version 1)
Quarter: 2017Q1

REPORT INFORMATION
  Report Type: Spontaneous
  Country: DE (occurrence: DE)
  Receive Date: 20170329
  Receipt Date: 20170329
  Transmission Date: 20170429
  Serious: Yes (Other)
  Sender: FDA-Public Use
  Company Number: GXKR2017DE001879

PATIENT

DRUGS (1)
  1. ATORVASTATIN [Suspect]
     Active Substance: ATORVASTATIN
     Indication: HYPERCHOLESTEROLAEMIA
     Dosage: 100 MG, UNK
     Route: 048
     Dates: start: 19970811

REACTIONS (6)
  - Paraesthesia [Unknown]
  - Polyneuropathy [Recovered/Resolved with Sequelae]
  - Muscle atrophy [Unknown]
  - Impaired healing [Unknown]
  - Skin atrophy [Unknown]
  - Hypoaesthesia [Unknown]

NARRATIVE: CASE EVENT DATE: 20070801
